FAERS Safety Report 8166824-2 (Version None)
Quarter: 2012Q1

REPORT INFORMATION
  Report Type: 
  Country: None (occurrence: None)
  Receive Date: 20120227
  Receipt Date: 20120217
  Transmission Date: 20120608
  Serious: Yes (Disabling)
  Sender: FDA-Public Use
  Company Number: US-ROCHE-677303

PATIENT
  Sex: Male
  Weight: 127.9 kg

DRUGS (20)
  1. VEMURAFENIB [Suspect]
     Dosage: DOSE REDUCED.
     Route: 048
  2. PREDNISONE [Concomitant]
     Dosage: TOTAL DAILY DOSE REPORTED AS: 10 MG/ 5 MG.
  3. SUCRALFATE [Concomitant]
  4. NAPROXEN (ALEVE) [Concomitant]
  5. ASACOL [Concomitant]
  6. LOMOTIL [Concomitant]
  7. REGLAN [Concomitant]
     Dosage: REPORTED TDD: PRN
  8. FLAGYL [Concomitant]
     Dates: start: 20090201, end: 20100115
  9. PRILOSEC [Concomitant]
  10. ACETAMINOPHEN [Concomitant]
     Dosage: DRUG REPORTED AS: ACETOMENOPHEN.
  11. VEMURAFENIB [Suspect]
     Indication: METASTATIC MALIGNANT MELANOMA
     Dosage: LAST DOSE PRIOR TO SAE: 28 DECEMBER 2009, REPORTED ROUTE: PER ORAL (PO).
     Route: 048
  12. LOMOTIL [Concomitant]
  13. FLAGYL [Concomitant]
  14. CIPRO [Concomitant]
     Dates: start: 20091229, end: 20100115
  15. PRILOSEC [Concomitant]
  16. VICODIN [Concomitant]
     Dosage: FREQUENCY: AS NECESSARY (PRN).
  17. SUCRALFATE [Concomitant]
  18. ASACOL [Concomitant]
  19. CIPRO [Concomitant]
  20. REGLAN [Concomitant]
     Dosage: FREQUENCY: AS NECESSARY (PRN).
     Dates: start: 20091102, end: 20100324

REACTIONS (4)
  - MYALGIA [None]
  - GAIT DISTURBANCE [None]
  - BLOOD BLISTER [None]
  - TENOSYNOVITIS [None]
